FAERS Safety Report 21001413 (Version 1)
Quarter: 2022Q3

REPORT INFORMATION
  Report Type: Report from Study
  Country: AR (occurrence: AR)
  Receive Date: 20220624
  Receipt Date: 20220624
  Transmission Date: 20221027
  Serious: Yes (Hospitalization, Other)
  Sender: FDA-Public Use
  Company Number: AR-NOVARTISPH-NVSC2022AR136037

PATIENT
  Age: 37 Year
  Sex: Female

DRUGS (1)
  1. HYRIMOZ [Suspect]
     Active Substance: ADALIMUMAB-ADAZ
     Indication: Psoriatic arthropathy
     Dosage: 40 MG, BIW
     Route: 058
     Dates: start: 20211001, end: 20211101

REACTIONS (3)
  - Fluid retention [Not Recovered/Not Resolved]
  - Hypersensitivity [Unknown]
  - Thrombosis [Unknown]

NARRATIVE: CASE EVENT DATE: 20211118
